FAERS Safety Report 23267290 (Version 4)
Quarter: 2024Q4

REPORT INFORMATION
  Report Type: Spontaneous
  Country: US (occurrence: US)
  Receive Date: 20231206
  Receipt Date: 20241206
  Transmission Date: 20250114
  Serious: Yes (Other)
  Sender: PFIZER
  Company Number: US-PFIZER INC-PV202300018541

PATIENT
  Age: 83 Year
  Sex: Female
  Weight: 53.061 kg

DRUGS (6)
  1. IBRANCE [Suspect]
     Active Substance: PALBOCICLIB
     Indication: Breast cancer stage IV
     Dosage: DAYS 1-21, THEN OFF FOR 7 DAYS
     Route: 048
  2. IBRANCE [Suspect]
     Active Substance: PALBOCICLIB
     Dosage: 1 PO (PER ORAL). Q (EVERY) OTHER DAY ON DAYS 1-21, THEN 7 DAYS OFF
     Route: 048
  3. PROLIA [Concomitant]
     Active Substance: DENOSUMAB
     Indication: Breast cancer female
     Dosage: Q (EVERY) 6 MONTHS
     Dates: start: 20190321
  4. PROLIA [Concomitant]
     Active Substance: DENOSUMAB
     Indication: Oestrogen therapy
  5. FASLODEX [Concomitant]
     Active Substance: FULVESTRANT
     Indication: Breast cancer female
     Dosage: 500 MG, CYCLIC (D1, D15 FOR 1ST MONTH, THEN ONCE MONTHLY FOR SUBSEQUENT CYCLES)
     Route: 030
     Dates: start: 20160410
  6. FASLODEX [Concomitant]
     Active Substance: FULVESTRANT
     Dosage: D1,D15 FOR 1ST MONTH, THEN ONCE MONTHLY FOR SUBSEQUENT CYCLES
     Route: 030
     Dates: start: 20160410

REACTIONS (4)
  - Second primary malignancy [Unknown]
  - B-cell lymphoma [Unknown]
  - Off label use [Unknown]
  - Iron deficiency anaemia [Unknown]

NARRATIVE: CASE EVENT DATE: 20050101
